FAERS Safety Report 9860651 (Version 1)
Quarter: 2014Q1

REPORT INFORMATION
  Report Type: Spontaneous
  Country: US (occurrence: US)
  Receive Date: 20140202
  Receipt Date: 20140202
  Transmission Date: 20141002
  Serious: No
  Sender: FDA-Public Use
  Company Number: US-ALLERGAN-1300127US

PATIENT
  Sex: Female

DRUGS (5)
  1. BOTOX [Suspect]
     Indication: BLEPHAROSPASM
     Dosage: UNK UNK, SINGLE
     Route: 030
  2. REFRESH OPTIVE [Concomitant]
     Indication: DRY EYE
     Dosage: UNK
     Route: 047
  3. REFRESH PM                         /00880201/ [Concomitant]
     Indication: DRY EYE
     Dosage: UNK
     Route: 047
  4. REFRESH OPTIVE ADVANCED [Concomitant]
     Indication: DRY EYE
     Dosage: UNK
     Route: 047
  5. REFRESH PLUS [Concomitant]
     Indication: DRY EYE
     Dosage: UNK
     Route: 047

REACTIONS (1)
  - Dry eye [Unknown]
